FAERS Safety Report 10305970 (Version 1)
Quarter: 2014Q3

REPORT INFORMATION
  Report Type: Spontaneous
  Country: US (occurrence: None)
  Receive Date: 20140714
  Receipt Date: 20140714
  Transmission Date: 20150326
  Serious: No
  Sender: FDA-Public Use
  Company Number: None

PATIENT
  Age: 63 Year
  Sex: Female
  Weight: 81.65 kg

DRUGS (1)
  1. RECLAST [Suspect]
     Active Substance: ZOLEDRONIC ACID
     Indication: BONE DISORDER
     Dosage: INTO A VEIN
     Route: 042
     Dates: start: 20140627, end: 20140627

REACTIONS (8)
  - Discomfort [None]
  - Bronchitis [None]
  - Asthenia [None]
  - Back pain [None]
  - Chest discomfort [None]
  - Headache [None]
  - Myalgia [None]
  - Pain [None]

NARRATIVE: CASE EVENT DATE: 20140627
